FAERS Safety Report 6508075-0 (Version None)
Quarter: 2009Q4

REPORT INFORMATION
  Report Type: 
  Country: None (occurrence: None)
  Receive Date: 20091210
  Receipt Date: 20090521
  Transmission Date: 20100525
  Serious: Yes (Hospitalization)
  Sender: FDA-Public Use
  Company Number: CIP09001326

PATIENT
  Sex: Female

DRUGS (2)
  1. ACTONEL [Suspect]
     Dosage: 35 MG, ORAL
     Route: 048
     Dates: start: 20060801, end: 20070101
  2. FOSAMAX [Suspect]
     Dosage: 70 MG ONCE WEEKLY, ORAL
     Route: 048
     Dates: start: 20010101, end: 20060101

REACTIONS (6)
  - BONE DISORDER [None]
  - BONE PAIN [None]
  - JAW DISORDER [None]
  - OSTEONECROSIS [None]
  - TOOTH DISORDER [None]
  - TOOTH LOSS [None]
